FAERS Safety Report 9305397 (Version 1)
Quarter: 2012Q4

REPORT INFORMATION
  Report Type: Spontaneous
  Country: US (occurrence: None)
  Receive Date: 20121221
  Receipt Date: 20121221
  Transmission Date: 20130627
  Serious: Yes (Death)
  Sender: FDA-Public Use
  Company Number: ADR-2012-H7-098

PATIENT

DRUGS (3)
  1. NEVIRAPINE TABLETS/ HETERO LABS, LTD [Suspect]
     Indication: ACQUIRED IMMUNODEFICIENCY SYNDROME
     Route: 048
  2. ABACAVIR+LAMIVUDINE (EPZICOM, EPZ) [Concomitant]
  3. EFAVIRENZ (SUSTIVA, EFV) [Concomitant]

REACTIONS (3)
  - Ectopic pregnancy [None]
  - Exposure during pregnancy [None]
  - Abortion induced [None]
